FAERS Safety Report 9053233 (Version 1)
Quarter: 2013Q1

REPORT INFORMATION
  Report Type: Spontaneous
  Country: EC (occurrence: EC)
  Receive Date: 20130207
  Receipt Date: 20130207
  Transmission Date: 20140127
  Serious: Yes (Hospitalization)
  Sender: FDA-Public Use
  Company Number: PHHY2013EC011456

PATIENT
  Age: 69 None
  Sex: Female

DRUGS (1)
  1. DIOVAN [Suspect]
     Indication: HYPERTENSION
     Dosage: 80 MG, UNK
     Route: 048
     Dates: start: 20100712, end: 20130121

REACTIONS (3)
  - Pyrexia [Unknown]
  - Tachycardia [Unknown]
  - Drug ineffective [Unknown]
